FAERS Safety Report 10570153 (Version 1)
Quarter: 2014Q4

REPORT INFORMATION
  Report Type: Spontaneous
  Country: DE (occurrence: None)
  Receive Date: 20141105
  Receipt Date: 20141105
  Transmission Date: 20150529
  Serious: Yes (Life-Threatening, Hospitalization)
  Sender: FDA-Public Use
  Company Number: FK201404758

PATIENT
  Age: 45 Year
  Sex: Male

DRUGS (1)
  1. GEMCITABINE (MANUFACTURER UNKNOWN) (GEMCITABINE) (GEMCITABINE) [Suspect]
     Active Substance: GEMCITABINE HYDROCHLORIDE
     Indication: SMALL INTESTINE CARCINOMA

REACTIONS (9)
  - Thrombotic microangiopathy [None]
  - Red blood cell count [None]
  - Dependence on enabling machine or device [None]
  - Thrombocytopenia [None]
  - Nausea [None]
  - Vomiting [None]
  - Renal failure [None]
  - Haemolytic anaemia [None]
  - Haemolytic uraemic syndrome [None]
